FAERS Safety Report 12202310 (Version 2)
Quarter: 2016Q4

REPORT INFORMATION
  Report Type: Report from Study
  Country: PA (occurrence: PA)
  Receive Date: 20160322
  Receipt Date: 20161128
  Transmission Date: 20170207
  Serious: Yes (Hospitalization)
  Sender: FDA-Public Use
  Company Number: PHHY2015PA105640

PATIENT
  Age: 11 Year
  Sex: Male

DRUGS (2)
  1. EXJADE [Suspect]
     Active Substance: DEFERASIROX
     Dosage: 500 MG, UNK
     Route: 048
  2. EXJADE [Suspect]
     Active Substance: DEFERASIROX
     Indication: PRODUCT USED FOR UNKNOWN INDICATION
     Dosage: 1000 MG, UNK
     Route: 048

REACTIONS (9)
  - Vomiting [Unknown]
  - Drug administered to patient of inappropriate age [Unknown]
  - Abdominal discomfort [Unknown]
  - Pneumonia [Unknown]
  - Abdominal pain upper [Unknown]
  - Drug interaction [Unknown]
  - Gastritis [Unknown]
  - Burning sensation [Unknown]
  - Nausea [Unknown]
